FAERS Safety Report 5801686-7 (Version None)
Quarter: 2008Q3

REPORT INFORMATION
  Report Type: 
  Country: None (occurrence: None)
  Receive Date: 20080707
  Receipt Date: 20080630
  Transmission Date: 20090109
  Serious: Yes (Hospitalization)
  Sender: FDA-Public Use
  Company Number: B0526103A

PATIENT
  Age: 72 Year
  Sex: Female

DRUGS (14)
  1. VALTREX [Suspect]
     Indication: HERPES ZOSTER
     Dosage: 1000MG THREE TIMES PER DAY
     Route: 048
     Dates: start: 20080614, end: 20080617
  2. LIPITOR [Concomitant]
     Route: 048
  3. THEO-DUR [Concomitant]
     Route: 048
  4. PREDONINE [Concomitant]
     Route: 065
  5. MERISLON [Concomitant]
     Route: 048
  6. SOLANTAL [Concomitant]
     Route: 048
     Dates: start: 20080601
  7. DASEN [Concomitant]
     Route: 048
     Dates: start: 20080601
  8. ARASENA-A [Concomitant]
     Route: 061
     Dates: start: 20080614
  9. BLOPRESS [Concomitant]
     Indication: HYPERTENSION
     Dosage: 4MG PER DAY
     Route: 048
  10. SINGULAIR [Concomitant]
     Indication: ASTHMA
     Dosage: 10MG PER DAY
     Route: 048
  11. ALESION [Concomitant]
     Indication: ASTHMA
     Dosage: 10MG PER DAY
     Route: 048
  12. DECADRON [Concomitant]
     Indication: ASTHMA
     Dosage: .5MG PER DAY
     Route: 065
  13. LIPITOR [Concomitant]
     Dosage: 10MG PER DAY
     Route: 048
  14. THEOLONG [Concomitant]
     Indication: ASTHMA
     Dosage: 200MG PER DAY
     Route: 048

REACTIONS (5)
  - BLOOD CREATININE INCREASED [None]
  - BLOOD PRESSURE DECREASED [None]
  - NAUSEA [None]
  - RENAL FAILURE ACUTE [None]
  - VOMITING [None]
